FAERS Safety Report 15713623 (Version 1)
Quarter: 2018Q4

REPORT INFORMATION
  Report Type: Spontaneous
  Country: US (occurrence: US)
  Receive Date: 20181212
  Receipt Date: 20181212
  Transmission Date: 20190205
  Serious: No
  Sender: FDA-Public Use
  Company Number: None

PATIENT
  Age: 53 Year
  Sex: Male
  Weight: 96.75 kg

DRUGS (1)
  1. CARVEDILOL 3.125MG TWICE DAILY [Suspect]
     Active Substance: CARVEDILOL
     Indication: MYOCARDIAL INFARCTION
     Route: 048
     Dates: start: 20181105

REACTIONS (2)
  - Anxiety [None]
  - Cardiac disorder [None]

NARRATIVE: CASE EVENT DATE: 20181203
